FAERS Safety Report 6575484-3 (Version None)
Quarter: 2010Q1

REPORT INFORMATION
  Report Type: 
  Country: None (occurrence: None)
  Receive Date: 20100209
  Receipt Date: 20100128
  Transmission Date: 20100710
  Serious: Yes (Other)
  Sender: FDA-Public Use
  Company Number: FR-PFIZER INC-2010014373

PATIENT
  Age: 70 Year
  Sex: Female

DRUGS (3)
  1. ATARAX [Suspect]
     Indication: PREMEDICATION
     Dosage: 100 MG, 1X/DAY
     Route: 060
     Dates: start: 20091208, end: 20091208
  2. AMLODIPINE BESYLATE/VALSARTAN [Concomitant]
  3. TAHOR [Concomitant]

REACTIONS (4)
  - DRUG ADMINISTRATION ERROR [None]
  - GINGIVAL RECESSION [None]
  - ORAL DISCOMFORT [None]
  - ORAL MUCOSAL EXFOLIATION [None]
